FAERS Safety Report 9456323 (Version 1)
Quarter: 2013Q3

REPORT INFORMATION
  Report Type: Spontaneous
  Country: US (occurrence: None)
  Receive Date: 20130812
  Receipt Date: 20130812
  Transmission Date: 20140515
  Serious: Yes (Other)
  Sender: FDA-Public Use
  Company Number: None

PATIENT
  Age: 48 Year
  Sex: Female
  Weight: 61.24 kg

DRUGS (7)
  1. TRI-SPRINTEC [Suspect]
     Indication: ORAL CONTRACEPTION
     Dosage: 1 TABLET QD ORAL
     Route: 048
     Dates: start: 20130707, end: 20130722
  2. ZOLPIDEM [Concomitant]
  3. CYCLOBENZAPRINE [Concomitant]
  4. ALPRAZOLAM [Concomitant]
  5. FLUOXETINE [Concomitant]
  6. FLUTICASONE NASAL SPRAY [Concomitant]
  7. BUSPIRONE [Concomitant]

REACTIONS (3)
  - Weight increased [None]
  - Breast tenderness [None]
  - Product substitution issue [None]
